FAERS Safety Report 4933719-4 (Version None)
Quarter: 2006Q1

REPORT INFORMATION
  Report Type: 
  Country: None (occurrence: None)
  Receive Date: 20060306
  Receipt Date: 20050531
  Transmission Date: 20060701
  Serious: Yes (Other)
  Sender: FDA-Public Use
  Company Number: JP-BOEHRINGER INGELHEIM PHARMACEUTICALS, INC.-2005-BP-08924NB

PATIENT
  Sex: Male
  Weight: 65 kg

DRUGS (4)
  1. MICARDIS [Suspect]
     Indication: ESSENTIAL HYPERTENSION
     Route: 048
     Dates: start: 20040319
  2. MOBIC [Concomitant]
     Indication: BACK PAIN
     Route: 048
     Dates: start: 20040417
  3. LIVALO (PITAVASTATIN CALCIUM) [Concomitant]
     Indication: HYPERCHOLESTEROLAEMIA
     Route: 048
     Dates: start: 20040515
  4. TENORMIN [Concomitant]
     Indication: ESSENTIAL HYPERTENSION
     Route: 048
     Dates: start: 20050122

REACTIONS (1)
  - PROSTATE CANCER [None]
